FAERS Safety Report 4816387-1 (Version None)
Quarter: 2005Q4

REPORT INFORMATION
  Report Type: 
  Country: None (occurrence: None)
  Receive Date: 20051028
  Receipt Date: 20051017
  Transmission Date: 20060501
  Serious: Yes (Hospitalization)
  Sender: FDA-Public Use
  Company Number: 2005143271

PATIENT
  Sex: Female

DRUGS (1)
  1. CLINDAMYCIN HYDROCHLORIDE [Suspect]
     Indication: ILL-DEFINED DISORDER
     Dosage: 150 MG, ORAL
     Route: 048
     Dates: start: 20051012

REACTIONS (3)
  - DEHYDRATION [None]
  - DIARRHOEA [None]
  - SOMNOLENCE [None]
